FAERS Safety Report 10138629 (Version 2)
Quarter: 2014Q2

REPORT INFORMATION
  Report Type: Spontaneous
  Country: US (occurrence: US)
  Receive Date: 20140429
  Receipt Date: 20140513
  Transmission Date: 20141212
  Serious: No
  Sender: FDA-Public Use
  Company Number: US-JNJFOC-20140413810

PATIENT
  Sex: Male

DRUGS (1)
  1. ZYTIGA [Suspect]
     Indication: PROSTATE CANCER
     Dosage: 4*250 MG
     Route: 048
     Dates: start: 20130903, end: 20140115

REACTIONS (3)
  - Fatigue [Unknown]
  - Myalgia [Unknown]
  - Onychomadesis [Unknown]
